FAERS Safety Report 22104700 (Version 4)
Quarter: 2023Q2

REPORT INFORMATION
  Report Type: Report from Study
  Country: AU (occurrence: AU)
  Receive Date: 20230316
  Receipt Date: 20230428
  Transmission Date: 20230722
  Serious: Yes (Hospitalization)
  Sender: FDA-Public Use
  Company Number: AU-JNJFOC-20230327742

PATIENT
  Age: 72 Year
  Sex: Male
  Weight: 86.4 kg

DRUGS (26)
  1. CILTACABTAGENE AUTOLEUCEL [Suspect]
     Active Substance: CILTACABTAGENE AUTOLEUCEL
     Indication: Plasma cell myeloma
     Route: 042
     Dates: start: 20230213, end: 20230213
  2. CYCLOPHOSPHAMIDE [Suspect]
     Active Substance: CYCLOPHOSPHAMIDE
     Indication: Plasma cell myeloma
     Route: 042
     Dates: start: 20230208, end: 20230210
  3. FLUDARABINE [Suspect]
     Active Substance: FLUDARABINE PHOSPHATE
     Indication: Plasma cell myeloma
     Route: 042
     Dates: start: 20230208, end: 20230210
  4. LIPITOR [Concomitant]
     Active Substance: ATORVASTATIN CALCIUM
     Indication: Hypercholesterolaemia
     Route: 048
     Dates: start: 19910101
  5. TEMAZEPAM [Concomitant]
     Active Substance: TEMAZEPAM
     Indication: Insomnia
     Route: 048
     Dates: start: 20220707
  6. APIXABAN [Concomitant]
     Active Substance: APIXABAN
     Indication: Thrombosis prophylaxis
     Route: 048
     Dates: start: 20220813, end: 20230316
  7. METOPROLOL [Concomitant]
     Active Substance: METOPROLOL
     Indication: Atrial fibrillation
     Route: 048
     Dates: start: 20220813
  8. METOCLOPRAMIDE [Concomitant]
     Active Substance: METOCLOPRAMIDE
     Indication: Prophylaxis of nausea and vomiting
     Route: 048
     Dates: start: 20230208
  9. SOTALOL [Concomitant]
     Active Substance: SOTALOL
     Indication: Atrial fibrillation
     Route: 048
     Dates: start: 20230208
  10. VALACYCLOVIR HYDROCHLORIDE [Concomitant]
     Active Substance: VALACYCLOVIR HYDROCHLORIDE
     Indication: Antiviral prophylaxis
     Route: 048
     Dates: start: 20230208
  11. PENTAMIDINE [Concomitant]
     Active Substance: PENTAMIDINE
     Indication: Prophylaxis
     Route: 042
     Dates: start: 20230211
  12. PIPERACILLIN SODIUM\TAZOBACTAM SODIUM [Concomitant]
     Active Substance: PIPERACILLIN SODIUM\TAZOBACTAM SODIUM
     Indication: Febrile neutropenia
     Dosage: 4/0.5 GRAMS
     Route: 042
     Dates: start: 20230217, end: 20230223
  13. HYDROCORTISONE [Concomitant]
     Active Substance: HYDROCORTISONE
     Indication: Rash
     Route: 061
     Dates: start: 20230220
  14. SODIUM PHOSPHATE, MONOBASIC [Concomitant]
     Active Substance: SODIUM PHOSPHATE, MONOBASIC
     Indication: Hypophosphataemia
     Route: 048
     Dates: start: 20230221
  15. POTASSIUM CHLORIDE [Concomitant]
     Active Substance: POTASSIUM CHLORIDE
     Indication: Hypokalaemia
     Route: 048
     Dates: start: 20230221, end: 20230227
  16. OXYCODONE [Concomitant]
     Active Substance: OXYCODONE
     Indication: Pain in extremity
     Dosage: 5-10 MG
     Route: 048
     Dates: start: 20230221
  17. OXYCODONE [Concomitant]
     Active Substance: OXYCODONE
     Indication: Back pain
  18. CLOTRIMAZOLE [Concomitant]
     Active Substance: CLOTRIMAZOLE
     Indication: Rash
     Route: 061
     Dates: start: 20230222
  19. MELATONIN [Concomitant]
     Active Substance: MELATONIN
     Indication: Fatigue
     Route: 048
     Dates: start: 20230222, end: 20230226
  20. MELATONIN [Concomitant]
     Active Substance: MELATONIN
     Indication: Insomnia
  21. CYCLIZINE [Concomitant]
     Active Substance: CYCLIZINE
     Indication: Prophylaxis of nausea and vomiting
     Route: 048
     Dates: start: 20230224, end: 20230224
  22. ACETAMINOPHEN\CODEINE PHOSPHATE [Concomitant]
     Active Substance: ACETAMINOPHEN\CODEINE PHOSPHATE
     Indication: Pain in extremity
     Dosage: 500/30 MG
     Route: 048
     Dates: start: 20230225
  23. ACETAMINOPHEN\CODEINE PHOSPHATE [Concomitant]
     Active Substance: ACETAMINOPHEN\CODEINE PHOSPHATE
     Indication: Back pain
  24. TAPENTADOL [Concomitant]
     Active Substance: TAPENTADOL
     Indication: Pain in extremity
     Route: 048
     Dates: start: 20230225
  25. TAPENTADOL [Concomitant]
     Active Substance: TAPENTADOL
     Indication: Back pain
     Route: 048
     Dates: start: 20230226, end: 20230306
  26. CHLORAMPHENICOL [Concomitant]
     Active Substance: CHLORAMPHENICOL
     Indication: Conjunctivitis
     Route: 047
     Dates: start: 20230306, end: 20230316

REACTIONS (2)
  - Bell^s palsy [Not Recovered/Not Resolved]
  - Keratopathy [Not Recovered/Not Resolved]

NARRATIVE: CASE EVENT DATE: 20230309
